FAERS Safety Report 13784315 (Version 1)
Quarter: 2017Q3

REPORT INFORMATION
  Report Type: Report from Study
  Country: GB (occurrence: GB)
  Receive Date: 20170724
  Receipt Date: 20170724
  Transmission Date: 20171127
  Serious: Yes (Life-Threatening, Hospitalization, Disabling)
  Sender: FDA-Public Use
  Company Number: PHHY2015GB124827

PATIENT
  Age: 43 Year
  Sex: Female
  Weight: 107 kg

DRUGS (27)
  1. 5-FLUOROURACIL [Suspect]
     Active Substance: FLUOROURACIL
     Indication: COLORECTAL CANCER METASTATIC
     Dosage: 186 MG, BIW
     Route: 042
     Dates: start: 20150806
  2. AVASTIN [Suspect]
     Active Substance: BEVACIZUMAB
     Indication: COLORECTAL CANCER METASTATIC
     Dosage: 535 MG, BIW
     Route: 042
     Dates: start: 20150806
  3. DIFFLAM [Concomitant]
     Active Substance: BENZYDAMINE HYDROCHLORIDE
     Indication: PROPHYLAXIS
     Dosage: 30 ML, UNK
     Route: 065
     Dates: start: 20150806, end: 20160330
  4. FOLINIC ACID [Suspect]
     Active Substance: LEUCOVORIN
     Indication: COLORECTAL CANCER METASTATIC
     Dosage: 186 MG, BIW
     Route: 042
     Dates: start: 20150806
  5. FOLINIC ACID [Suspect]
     Active Substance: LEUCOVORIN
     Dosage: MOST RECENT DOSE PRIOR TO SAE- 20 AUG 2015
     Route: 042
     Dates: start: 20150806
  6. CODEINE PHOSPHATE [Concomitant]
     Active Substance: CODEINE PHOSPHATE
     Indication: PRODUCT USED FOR UNKNOWN INDICATION
     Dosage: 30 MG, UNK
     Route: 065
     Dates: start: 20150706
  7. LANSOPRAZOLE. [Concomitant]
     Active Substance: LANSOPRAZOLE
     Indication: PROPHYLAXIS
     Dosage: 30 MG, UNK
     Route: 065
     Dates: start: 20150706, end: 20160330
  8. ORAMORPH [Concomitant]
     Active Substance: MORPHINE SULFATE
     Indication: PRODUCT USED FOR UNKNOWN INDICATION
     Dosage: 10 MG, UNK
     Route: 065
     Dates: start: 20150706, end: 20160330
  9. OXALIPLATIN. [Suspect]
     Active Substance: OXALIPLATIN
     Indication: COLORECTAL CANCER METASTATIC
     Dosage: 186 MG, BIW
     Route: 042
     Dates: start: 20150806
  10. 5-FLUOROURACIL [Suspect]
     Active Substance: FLUOROURACIL
     Dosage: LAST DOSE PRIOR TO SAE- 20 AUG 2015
     Route: 042
     Dates: start: 20150806
  11. FOLINIC ACID [Suspect]
     Active Substance: LEUCOVORIN
     Dosage: MOST RECENT DOSE PRIOR TO SAE- 20/AUG/2015 AT 15.00
     Route: 042
     Dates: start: 20150806
  12. AVASTIN [Suspect]
     Active Substance: BEVACIZUMAB
     Dosage: DATE OF MOST RECENT DOSE (1350MG) PRIOR TO SAE- 20 AUG 2015
     Route: 042
     Dates: start: 20150806
  13. COCODAMOL [Concomitant]
     Active Substance: ACETAMINOPHEN\CODEINE PHOSPHATE
     Indication: PRODUCT USED FOR UNKNOWN INDICATION
     Dosage: 30/500 MG
     Route: 065
     Dates: start: 20150706, end: 20160330
  14. SENNA [Concomitant]
     Active Substance: SENNA LEAF\SENNOSIDES\SENNOSIDES A AND B
     Indication: PRODUCT USED FOR UNKNOWN INDICATION
     Dosage: 7.5 MG, UNK
     Route: 065
     Dates: start: 20150706, end: 20160330
  15. TAZOCIN [Concomitant]
     Active Substance: PIPERACILLIN SODIUM\TAZOBACTAM SODIUM
     Indication: PYREXIA
     Dosage: 4.5 G, UNK
     Route: 065
     Dates: start: 20150916, end: 20150917
  16. LOPERAMIDE [Concomitant]
     Active Substance: LOPERAMIDE
     Indication: DIARRHOEA
     Dosage: 2 MG, UNK
     Route: 065
     Dates: start: 20150806, end: 20160330
  17. OXALIPLATIN. [Suspect]
     Active Substance: OXALIPLATIN
     Dosage: LAST DOSE PRIOR TO SAE- 20 AUG 2015
     Route: 042
     Dates: start: 20150806
  18. AVASTIN [Suspect]
     Active Substance: BEVACIZUMAB
     Dosage: DATE OF MOST RECENT DOSE (535MG) PRIOR TO SAE- 20/AUG/2015 AT 13.50PM
     Route: 042
     Dates: start: 20150806
  19. XELODA [Suspect]
     Active Substance: CAPECITABINE
     Indication: COLORECTAL CANCER METASTATIC
     Dosage: 6126 MG, BIW
     Route: 042
  20. XELODA [Suspect]
     Active Substance: CAPECITABINE
     Dosage: LAST DOSE PRIOR TO SAE- 20 AUG 2015
     Route: 042
  21. OXYNORM [Concomitant]
     Active Substance: OXYCODONE HYDROCHLORIDE
     Indication: ANALGESIC THERAPY
     Dosage: 10 MG, UNK
     Route: 065
     Dates: start: 20150916, end: 20150918
  22. GAVISCON [Concomitant]
     Active Substance: ALUMINUM HYDROXIDE\MAGNESIUM CARBONATE
     Indication: NAUSEA
     Dosage: 10 ML, UNK
     Route: 065
     Dates: start: 20150917, end: 20150918
  23. DOMPERIDONE [Concomitant]
     Active Substance: DOMPERIDONE
     Indication: PROPHYLAXIS
     Dosage: 10 MG, UNK
     Route: 065
     Dates: start: 20150806, end: 20160330
  24. TAZOCIN [Concomitant]
     Active Substance: PIPERACILLIN SODIUM\TAZOBACTAM SODIUM
     Indication: PROPHYLAXIS
     Dosage: 4.5 G, UNK
     Route: 065
     Dates: start: 20150824, end: 20150824
  25. ZOPICLONE [Concomitant]
     Active Substance: ZOPICLONE
     Indication: PROPHYLAXIS
     Dosage: 5 MG, UNK
     Route: 065
     Dates: start: 20150706, end: 20160330
  26. OXALIPLATIN. [Suspect]
     Active Substance: OXALIPLATIN
     Dosage: LAST DOSE PRIOR TO SAE- 20/AUG/2015 AT 15.00
     Route: 042
     Dates: start: 20150806
  27. XELODA [Suspect]
     Active Substance: CAPECITABINE
     Dosage: LAST DOSE PRIOR TO SAE- 20/AUG/2015
     Route: 042

REACTIONS (2)
  - Intestinal perforation [Recovered/Resolved]
  - Anaemia [Recovered/Resolved]

NARRATIVE: CASE EVENT DATE: 20150828
